FAERS Safety Report 5209052-2 (Version None)
Quarter: 2007Q1

REPORT INFORMATION
  Report Type: 
  Country: None (occurrence: None)
  Receive Date: 20070116
  Receipt Date: 20070110
  Transmission Date: 20070707
  Serious: Yes (Death, Hospitalization)
  Sender: FDA-Public Use
  Company Number: PHBS2007TR00968

PATIENT
  Age: 30 Month
  Sex: Male

DRUGS (1)
  1. IMIPRAMINE [Suspect]

REACTIONS (4)
  - ACCIDENTAL OVERDOSE [None]
  - GRAND MAL CONVULSION [None]
  - LIFE SUPPORT [None]
  - VENTRICULAR ARRHYTHMIA [None]
